FAERS Safety Report 17991957 (Version 1)
Quarter: 2020Q3

REPORT INFORMATION
  Report Type: Spontaneous
  Country: CN (occurrence: CN)
  Receive Date: 20200707
  Receipt Date: 20200707
  Transmission Date: 20201105
  Serious: Yes (Other)
  Sender: FDA-Public Use
  Company Number: CN-FRESENIUS KABI-FK202006787

PATIENT
  Age: 62 Year
  Sex: Male

DRUGS (6)
  1. METHYLPREDNISOLONE (MANUFACTURER UNKNOWN) [Suspect]
     Active Substance: METHYLPREDNISOLONE
     Indication: ADVERSE EVENT
     Route: 042
  2. ETOPOSIDE (MANUFACTURER UNKNOWN) [Suspect]
     Active Substance: ETOPOSIDE
     Indication: SQUAMOUS CELL CARCINOMA OF LUNG
     Route: 065
  3. CEFTAZIDIME. [Concomitant]
     Active Substance: CEFTAZIDIME
     Indication: EVIDENCE BASED TREATMENT
     Route: 042
  4. MOXIFLOXACIN. [Concomitant]
     Active Substance: MOXIFLOXACIN
     Indication: EVIDENCE BASED TREATMENT
     Route: 042
  5. CISPLATIN (MANUFACTURER UNKNOWN) [Suspect]
     Active Substance: CISPLATIN
     Indication: SQUAMOUS CELL CARCINOMA OF LUNG
     Route: 065
  6. TORIPALIMAB. [Suspect]
     Active Substance: TORIPALIMAB
     Indication: SQUAMOUS CELL CARCINOMA OF LUNG
     Route: 065

REACTIONS (4)
  - Pneumonia [Recovered/Resolved]
  - Candida infection [Recovered/Resolved]
  - Pseudomonas infection [Recovered/Resolved]
  - Pneumocystis jirovecii infection [Recovered/Resolved]
